FAERS Safety Report 5144446-5 (Version None)
Quarter: 2006Q4

REPORT INFORMATION
  Report Type: 
  Country: None (occurrence: None)
  Receive Date: 20061031
  Receipt Date: 20061020
  Transmission Date: 20070319
  Serious: Yes (Other)
  Sender: FDA-Public Use
  Company Number: 231528

PATIENT
  Age: 11 Year
  Sex: Female

DRUGS (1)
  1. NUTROPIN [Suspect]
     Indication: BODY HEIGHT BELOW NORMAL
     Dosage: SEE IMAGE

REACTIONS (4)
  - MACULAR OEDEMA [None]
  - RETINAL OEDEMA [None]
  - RETINOPATHY [None]
  - VISUAL ACUITY REDUCED [None]
